FAERS Safety Report 7414191-1 (Version None)
Quarter: 2011Q2

REPORT INFORMATION
  Report Type: 
  Country: None (occurrence: None)
  Receive Date: 20110411
  Receipt Date: 20110411
  Transmission Date: 20111010
  Serious: Yes (Disabling)
  Sender: FDA-Public Use
  Company Number: None

PATIENT
  Age: 79 Year
  Sex: Male
  Weight: 58.0604 kg

DRUGS (1)
  1. ETHAMBUTOL HYDROCHLORIDE [Suspect]
     Indication: TUBERCULOSIS
     Dosage: 1000 MG ONCE A DAY PO
     Route: 048
     Dates: start: 20101026, end: 20110113

REACTIONS (2)
  - BLINDNESS [None]
  - TOXICITY TO VARIOUS AGENTS [None]
